FAERS Safety Report 15283579 (Version 3)
Quarter: 2018Q3

REPORT INFORMATION
  Report Type: Report from Study
  Country: JP (occurrence: JP)
  Receive Date: 20180816
  Receipt Date: 20180913
  Transmission Date: 20181010
  Serious: Yes (Other)
  Sender: FDA-Public Use
  Company Number: JP-TAKEDA-2018MPI010555

PATIENT
  Age: 70 Year
  Sex: Female
  Weight: 50.3 kg

DRUGS (8)
  1. DARZALEX [Suspect]
     Active Substance: DARATUMUMAB
     Dosage: 16 MG/KG, 1/WEEK
     Route: 041
     Dates: start: 20171211, end: 20171225
  2. DARZALEX [Suspect]
     Active Substance: DARATUMUMAB
     Dosage: 16 MG/KG, Q2WEEKS
     Route: 041
     Dates: start: 20180110
  3. ACETAMINOPHEN. [Concomitant]
     Active Substance: ACETAMINOPHEN
     Indication: PREMEDICATION
     Dosage: 1000 MG, QD
     Route: 048
     Dates: start: 20171211
  4. DIPHENHYDRAMINE HYDROCHLORIDE. [Concomitant]
     Active Substance: DIPHENHYDRAMINE HYDROCHLORIDE
     Indication: PREMEDICATION
     Dosage: 50 MG, QD
     Route: 048
     Dates: start: 20171211
  5. DARZALEX [Suspect]
     Active Substance: DARATUMUMAB
     Indication: PLASMA CELL MYELOMA
     Dosage: 16 MG/KG, 1/WEEK
     Route: 041
     Dates: start: 20171211, end: 20171211
  6. DARZALEX [Suspect]
     Active Substance: DARATUMUMAB
     Dosage: 25 ML, Q1HR
     Route: 041
  7. DEXAMETHASONE ACETATE [Suspect]
     Active Substance: DEXAMETHASONE ACETATE
     Indication: PREMEDICATION
     Dosage: 20 MG, QD
     Route: 042
     Dates: start: 20171019
  8. BORTEZOMIB. [Suspect]
     Active Substance: BORTEZOMIB
     Indication: PLASMA CELL MYELOMA
     Dosage: 1.3 MG/M2, UNK
     Route: 058
     Dates: start: 20171211

REACTIONS (11)
  - Febrile neutropenia [Recovering/Resolving]
  - White blood cell count decreased [Recovering/Resolving]
  - Chills [Recovered/Resolved]
  - Cytomegalovirus infection [Recovering/Resolving]
  - Dyspnoea [Recovered/Resolved]
  - Mouth haemorrhage [Recovering/Resolving]
  - Pyrexia [Recovered/Resolved]
  - Oral candidiasis [Recovering/Resolving]
  - Infusion related reaction [Recovered/Resolved]
  - Vomiting [Recovered/Resolved]
  - Liver disorder [Not Recovered/Not Resolved]

NARRATIVE: CASE EVENT DATE: 20171211
